FAERS Safety Report 18512524 (Version 1)
Quarter: 2020Q4

REPORT INFORMATION
  Report Type: Report from Study
  Country: US (occurrence: US)
  Receive Date: 20201117
  Receipt Date: 20201117
  Transmission Date: 20210114
  Serious: Yes (Hospitalization)
  Sender: FDA-Public Use
  Company Number: US-JNJFOC-20170200175

PATIENT
  Age: 66 Year
  Sex: Male
  Weight: 106.6 kg

DRUGS (27)
  1. ATORVASTATIN [Concomitant]
     Active Substance: ATORVASTATIN
     Route: 048
  2. APALUTAMIDE [Suspect]
     Active Substance: APALUTAMIDE
     Indication: PROSTATE CANCER METASTATIC
     Route: 048
     Dates: start: 20160627
  3. PREDNSIONE [Suspect]
     Active Substance: PREDNISONE
     Indication: PROSTATE CANCER METASTATIC
     Route: 048
     Dates: start: 20160627
  4. FIRMAGON [Concomitant]
     Active Substance: DEGARELIX ACETATE
     Route: 058
  5. MYRBETRIQ [Concomitant]
     Active Substance: MIRABEGRON
     Route: 048
     Dates: start: 201412, end: 20170328
  6. LIPITOR [Concomitant]
     Active Substance: ATORVASTATIN CALCIUM
     Indication: DYSLIPIDAEMIA
     Route: 048
  7. SYNTHROID [Concomitant]
     Active Substance: LEVOTHYROXINE SODIUM
     Indication: THYROID DISORDER
     Route: 048
  8. MYRBETRIQ [Concomitant]
     Active Substance: MIRABEGRON
     Indication: BENIGN PROSTATIC HYPERPLASIA
     Route: 048
  9. XGEVA [Concomitant]
     Active Substance: DENOSUMAB
     Indication: NUTRITIONAL SUPPLEMENTATION
     Route: 058
     Dates: start: 20160511, end: 20170328
  10. LEVEMIR [Concomitant]
     Active Substance: INSULIN DETEMIR
     Dosage: 50 UNITS
     Route: 058
  11. GLUCOPHAGE [Concomitant]
     Active Substance: METFORMIN HYDROCHLORIDE
     Indication: DIABETES MELLITUS
     Route: 048
  12. METAGLIP [Concomitant]
     Active Substance: GLIPIZIDE\METFORMIN HYDROCHLORIDE
     Indication: DIABETES MELLITUS
     Dates: start: 1993, end: 20170126
  13. LEVOTHYROXINE. [Concomitant]
     Active Substance: LEVOTHYROXINE
     Indication: HYPOTHYROIDISM
     Route: 048
     Dates: start: 2012, end: 20170127
  14. MYRBETRIQ [Concomitant]
     Active Substance: MIRABEGRON
     Indication: BENIGN PROSTATIC HYPERPLASIA
     Route: 048
     Dates: start: 201412, end: 20170328
  15. METANX [Concomitant]
     Active Substance: LEVOMEFOLATE CALCIUM\METHYLCOBALAMIN\PYRIDOXAL PHOSPHATE ANHYDROUS
     Indication: DIABETIC NEUROPATHY
     Route: 048
     Dates: start: 2004, end: 20160715
  16. GLUCOPHAGE [Concomitant]
     Active Substance: METFORMIN HYDROCHLORIDE
     Route: 048
  17. ABIRATERONE ACETATE. [Suspect]
     Active Substance: ABIRATERONE ACETATE
     Indication: PROSTATE CANCER METASTATIC
     Route: 048
     Dates: start: 20160627
  18. VICTOZA [Concomitant]
     Active Substance: LIRAGLUTIDE
     Indication: DIABETES MELLITUS
     Route: 058
     Dates: start: 2012, end: 20170216
  19. ATORVASTATIN [Concomitant]
     Active Substance: ATORVASTATIN
     Indication: HYPERCHOLESTEROLAEMIA
     Route: 048
     Dates: start: 2009, end: 20170126
  20. ASPIRIN. [Concomitant]
     Active Substance: ASPIRIN
     Route: 048
  21. GLIPIZIDE. [Concomitant]
     Active Substance: GLIPIZIDE
     Indication: DIABETES MELLITUS
     Dosage: 5-500 MG
     Route: 048
     Dates: start: 1993
  22. QUINAPRIL. [Concomitant]
     Active Substance: QUINAPRIL
     Indication: HYPERTENSION
     Route: 048
     Dates: start: 2009, end: 20170126
  23. ASPIRIN. [Concomitant]
     Active Substance: ASPIRIN
     Indication: CARDIOVASCULAR EVENT PROPHYLAXIS
     Route: 048
     Dates: start: 2015, end: 20170126
  24. LEVEMIR [Concomitant]
     Active Substance: INSULIN DETEMIR
     Indication: DIABETES MELLITUS
     Route: 058
     Dates: start: 201510, end: 20170126
  25. MYRBETRIQ [Concomitant]
     Active Substance: MIRABEGRON
     Route: 048
  26. PROSTEON [Concomitant]
     Active Substance: MINERALS
     Indication: VITAMIN SUPPLEMENTATION
     Route: 048
     Dates: start: 201602, end: 20170328
  27. CEFDINIR. [Concomitant]
     Active Substance: CEFDINIR
     Route: 048

REACTIONS (1)
  - Pyrexia [Recovered/Resolved]

NARRATIVE: CASE EVENT DATE: 20170127
